FAERS Safety Report 21356650 (Version 3)
Quarter: 2022Q4

REPORT INFORMATION
  Report Type: Spontaneous
  Country: MX (occurrence: MX)
  Receive Date: 20220920
  Receipt Date: 20221208
  Transmission Date: 20230113
  Serious: Yes (Disabling, Other)
  Sender: FDA-Public Use
  Company Number: MX-SA-SAC20220914001934

PATIENT

DRUGS (3)
  1. LARONIDASE [Suspect]
     Active Substance: LARONIDASE
     Indication: Mucopolysaccharidosis I
     Dosage: 10 DF, QW
     Route: 042
     Dates: start: 20061103
  2. ACETAMINOPHEN [Concomitant]
     Active Substance: ACETAMINOPHEN
     Indication: Premedication
  3. DIPHENHYDRAMINE [Concomitant]
     Active Substance: DIPHENHYDRAMINE
     Indication: Premedication

REACTIONS (16)
  - Blindness [Not Recovered/Not Resolved]
  - Glaucoma [Not Recovered/Not Resolved]
  - Eye pain [Not Recovered/Not Resolved]
  - Intraocular pressure increased [Not Recovered/Not Resolved]
  - Corneal graft rejection [Unknown]
  - Mobility decreased [Not Recovered/Not Resolved]
  - Neuralgia [Not Recovered/Not Resolved]
  - Condition aggravated [Not Recovered/Not Resolved]
  - Nerve injury [Unknown]
  - Throat irritation [Recovered/Resolved]
  - Ocular cyst [Recovered/Resolved]
  - Balance disorder [Not Recovered/Not Resolved]
  - Corneal transplant [Unknown]
  - Catheter removal [Unknown]
  - Catheter placement [Unknown]
  - Incorrect drug administration rate [Unknown]

NARRATIVE: CASE EVENT DATE: 20150801
